FAERS Safety Report 5742385-X (Version None)
Quarter: 2008Q2

REPORT INFORMATION
  Report Type: 
  Country: None (occurrence: None)
  Receive Date: 20080514
  Receipt Date: 20080514
  Transmission Date: 20081010
  Serious: Yes (Hospitalization)
  Sender: FDA-Public Use
  Company Number: None

PATIENT
  Age: 74 Year
  Sex: Male
  Weight: 105.05 kg

DRUGS (2)
  1. DICLOFENAC SODIUM [Suspect]
     Indication: ARTHRITIS
     Dosage: 75 MG BID PO
     Route: 048
     Dates: start: 20070705, end: 20080201
  2. INDOMETHACIN [Suspect]
     Dosage: 50 MG EVERY DAY PO
     Route: 048
     Dates: start: 20071119, end: 20080201

REACTIONS (7)
  - BACK PAIN [None]
  - DIARRHOEA [None]
  - DUODENAL ULCER [None]
  - FAECES DISCOLOURED [None]
  - GASTRIC HAEMORRHAGE [None]
  - GASTRITIS EROSIVE [None]
  - HYPOTENSION [None]
